FAERS Safety Report 7815324-5 (Version None)
Quarter: 2011Q4

REPORT INFORMATION
  Report Type: 
  Country: None (occurrence: None)
  Receive Date: 20111014
  Receipt Date: 20111013
  Transmission Date: 20120403
  Serious: No
  Sender: FDA-Public Use
  Company Number: US-PFIZER INC-2011245427

PATIENT
  Sex: Female
  Weight: 58.05 kg

DRUGS (3)
  1. INDERAL LA [Concomitant]
     Dosage: UNK
  2. NORVASC [Concomitant]
     Dosage: 5 MG, 1X/DAY
  3. LIPITOR [Suspect]
     Indication: CEREBROVASCULAR ACCIDENT
     Dosage: 80 MG, 1X/DAY
     Route: 048
     Dates: start: 20100101, end: 20110927

REACTIONS (2)
  - MYOPATHY [None]
  - CONSTIPATION [None]
